FAERS Safety Report 13139807 (Version 5)
Quarter: 2017Q1

REPORT INFORMATION
  Report Type: Report from Study
  Country: CA (occurrence: CA)
  Receive Date: 20170123
  Receipt Date: 20170215
  Transmission Date: 20170428
  Serious: Yes (Other)
  Sender: FDA-Public Use
  Company Number: CA-HLSUS-2017-CA-000061

PATIENT
  Age: 59 Year
  Sex: Male

DRUGS (10)
  1. ENSURE [Concomitant]
     Active Substance: AMINO ACIDS\DEXTROSE\ELECTROLYTES NOS\SOYBEAN OIL\VITAMINS
  2. GRAVOL [Concomitant]
     Active Substance: DIMENHYDRINATE
  3. SENOKOT [Concomitant]
     Active Substance: SENNOSIDES
  4. DALTEPARIN [Concomitant]
     Active Substance: DALTEPARIN
  5. OLANZAPINE. [Concomitant]
     Active Substance: OLANZAPINE
     Indication: NAUSEA
     Dosage: 2.5 MG AS NEEDED
  6. LACTULOSE. [Concomitant]
     Active Substance: LACTULOSE
  7. HYDROMORPH CONTIN [Concomitant]
     Active Substance: HYDROMORPHONE
  8. HYDROMORPHONE [Concomitant]
     Active Substance: HYDROMORPHONE
  9. CLOZARIL [Suspect]
     Active Substance: CLOZAPINE
     Dosage: 250 MG BED TIME
     Route: 048
     Dates: start: 20160607
  10. LOPERAMIDE [Concomitant]
     Active Substance: LOPERAMIDE

REACTIONS (3)
  - Colon cancer metastatic [Unknown]
  - Lymphocytic leukaemia [Unknown]
  - Neutropenia [Unknown]

NARRATIVE: CASE EVENT DATE: 201612
